FAERS Safety Report 7801936 (Version 2)
Quarter: 2015Q4

REPORT INFORMATION
  Report Type: Spontaneous
  Country: US (occurrence: US)
  Receive Date: 20110207
  Receipt Date: 20151208
  Transmission Date: 20160305
  Serious: Yes (Hospitalization, Other)
  Sender: FDA-Public Use
  Company Number: US-JNJFOC-20101003908

PATIENT
  Sex: Female
  Weight: 77.11 kg

DRUGS (8)
  1. PREDNISONE. [Suspect]
     Active Substance: PREDNISONE
     Indication: INFECTION
     Route: 048
     Dates: start: 2000
  2. LEVAQUIN [Suspect]
     Active Substance: LEVOFLOXACIN
     Indication: NASOPHARYNGITIS
     Route: 048
     Dates: start: 201001
  3. LEVAQUIN [Suspect]
     Active Substance: LEVOFLOXACIN
     Indication: LUNG INFECTION
     Route: 048
     Dates: start: 201001
  4. LEVAQUIN [Suspect]
     Active Substance: LEVOFLOXACIN
     Indication: COUGH
     Route: 048
     Dates: start: 201001
  5. PREDNISONE. [Suspect]
     Active Substance: PREDNISONE
     Indication: BRONCHITIS
     Route: 048
     Dates: start: 2000
  6. LEVAQUIN [Suspect]
     Active Substance: LEVOFLOXACIN
     Indication: BRONCHITIS
     Route: 048
     Dates: start: 201001
  7. LEVAQUIN [Suspect]
     Active Substance: LEVOFLOXACIN
     Indication: PNEUMONIA
     Route: 048
     Dates: start: 201001
  8. PREDNISONE. [Suspect]
     Active Substance: PREDNISONE
     Indication: PNEUMONIA
     Route: 048
     Dates: start: 2000

REACTIONS (6)
  - Ligament rupture [Unknown]
  - Tendon rupture [Unknown]
  - Tendon rupture [Unknown]
  - Rotator cuff syndrome [Unknown]
  - Tenosynovitis stenosans [Unknown]
  - Neuropathy peripheral [Unknown]

NARRATIVE: CASE EVENT DATE: 2010
